FAERS Safety Report 5020714-2 (Version None)
Quarter: 2006Q2

REPORT INFORMATION
  Report Type: 
  Country: None (occurrence: None)
  Receive Date: 20060601
  Receipt Date: 20060524
  Transmission Date: 20061013
  Serious: Yes (Other)
  Sender: FDA-Public Use
  Company Number: 2006-05-1867

PATIENT
  Sex: Female

DRUGS (1)
  1. AERIUS (DESLORATADINE) [Suspect]
     Indication: RHINITIS
     Dosage: ORAL
     Route: 048

REACTIONS (2)
  - DRY EYE [None]
  - OCULAR HYPERTENSION [None]
